FAERS Safety Report 4940588-5 (Version None)
Quarter: 2006Q1

REPORT INFORMATION
  Report Type: 
  Country: None (occurrence: None)
  Receive Date: 20060201
  Receipt Date: 20051028
  Transmission Date: 20060701
  Serious: No
  Sender: FDA-Public Use
  Company Number: 2005PV003654

PATIENT
  Age: 58 Year
  Sex: Male
  Weight: 136.9863 kg

DRUGS (11)
  1. BYETTA [Suspect]
     Indication: DIABETES MELLITUS NON-INSULIN-DEPENDENT
     Dosage: 10 MCG;SC
     Route: 058
  2. BYETTA [Suspect]
     Dosage: 5 MCG;SC
     Route: 058
     Dates: start: 20050801
  3. ACTOS [Concomitant]
  4. LANTUS /USA/ [Concomitant]
  5. ALLOPURINOL [Concomitant]
  6. COUMADIN [Concomitant]
  7. VITORIN [Concomitant]
  8. LISINOPRIL [Concomitant]
  9. PROSCAR [Concomitant]
  10. ASPIRIN [Concomitant]
  11. HUMALOG MIX 75/25 [Concomitant]

REACTIONS (2)
  - DECREASED APPETITE [None]
  - WEIGHT DECREASED [None]
